FAERS Safety Report 5264213-1 (Version None)
Quarter: 2007Q1

REPORT INFORMATION
  Report Type: 
  Country: None (occurrence: None)
  Receive Date: 20070313
  Receipt Date: 20070301
  Transmission Date: 20070707
  Serious: Yes (Other)
  Sender: FDA-Public Use
  Company Number: US-PFIZER INC-2007016799

PATIENT
  Sex: Female

DRUGS (2)
  1. LIPITOR [Suspect]
     Indication: ILIAC ARTERY OCCLUSION
  2. FOSAMAX [Concomitant]

REACTIONS (1)
  - BLOOD PRESSURE DIASTOLIC INCREASED [None]
